FAERS Safety Report 9799825 (Version 2)
Quarter: 2014Q1

REPORT INFORMATION
  Report Type: Spontaneous
  Country: US (occurrence: US)
  Receive Date: 20140106
  Receipt Date: 20140106
  Transmission Date: 20141002
  Serious: No
  Sender: FDA-Public Use
  Company Number: US-GILEAD-2010-0032672

PATIENT
  Age: 66 Year
  Sex: Female
  Weight: 63.5 kg

DRUGS (26)
  1. LETAIRIS [Suspect]
     Indication: PULMONARY ARTERIAL HYPERTENSION
     Route: 048
     Dates: start: 20100329
  2. ASPIRIN [Concomitant]
  3. LASIX [Concomitant]
  4. FLUTICASONE [Concomitant]
  5. PREDNISONE [Concomitant]
  6. NEXIUM [Concomitant]
  7. ENDOCET [Concomitant]
  8. OXYCONTIN [Concomitant]
  9. LYRICA [Concomitant]
  10. ZOMIG [Concomitant]
  11. SYNTHROID [Concomitant]
  12. NYSTATIN [Concomitant]
  13. BACTRIM [Concomitant]
  14. CLONAZEPAM [Concomitant]
  15. CELEXA [Concomitant]
  16. NAMENDA [Concomitant]
  17. ARICEPT [Concomitant]
  18. TRIAMCINOLONE [Concomitant]
  19. VOLTAREN [Concomitant]
  20. ORPHENADRINE [Concomitant]
  21. AZATHIOPRINE [Concomitant]
  22. PLAQUENIL [Concomitant]
  23. METHOTREXATE [Concomitant]
  24. LEUCOVORIN CALCIUM [Concomitant]
  25. FOLIC ACID [Concomitant]
  26. POTASSIUM CHLORIDE [Concomitant]

REACTIONS (1)
  - Oedema peripheral [Recovered/Resolved]
